FAERS Safety Report 4380706-3 (Version None)
Quarter: 2004Q2

REPORT INFORMATION
  Report Type: 
  Country: None (occurrence: None)
  Receive Date: 20040616
  Receipt Date: 20040601
  Transmission Date: 20050107
  Serious: Yes (Other)
  Sender: FDA-Public Use
  Company Number: 2004IM000255

PATIENT
  Age: 50 Year
  Sex: Male

DRUGS (6)
  1. ADVAFERON (A643_INTERFERON ALFACON-1) [Suspect]
     Indication: HEPATITIS C
     Dosage: 18 MU;QOD;SUBCUTANEOUS
     Route: 058
     Dates: start: 20020116
  2. AMLODIPINE BESYLATE [Concomitant]
  3. KALLIDINOGENASE [Concomitant]
  4. NITRAZEPAM [Concomitant]
  5. INSULIN HUMAN [Concomitant]
  6. INSULIN LISPRO [Concomitant]

REACTIONS (3)
  - CARDIOVASCULAR DISORDER [None]
  - DIABETIC RETINOPATHY [None]
  - EYE HAEMORRHAGE [None]
